FAERS Safety Report 4933381-0 (Version None)
Quarter: 2006Q1

REPORT INFORMATION
  Report Type: 
  Country: None (occurrence: None)
  Receive Date: 20060306
  Receipt Date: 20051019
  Transmission Date: 20060701
  Serious: Yes (Hospitalization)
  Sender: FDA-Public Use
  Company Number: US-MERCK-0510USA08269

PATIENT
  Age: 72 Year
  Sex: Female
  Weight: 64 kg

DRUGS (43)
  1. VIOXX [Suspect]
     Indication: ARTHRITIS
     Route: 048
     Dates: start: 19991202, end: 20030722
  2. VIOXX [Suspect]
     Route: 048
     Dates: start: 19991202, end: 20030722
  3. VIOXX [Suspect]
     Indication: PAIN
     Route: 048
     Dates: start: 19991202, end: 20030722
  4. VIOXX [Suspect]
     Route: 048
     Dates: start: 19991202, end: 20030722
  5. CORTISONE ACETATE [Concomitant]
     Indication: ADRENOCORTICAL INSUFFICIENCY CHRONIC
     Route: 048
  6. ALLOPURINOL [Concomitant]
     Indication: GOUT
     Route: 048
     Dates: start: 20000127, end: 20050901
  7. ALLOPURINOL [Concomitant]
     Indication: ARTHRITIS
     Route: 048
     Dates: start: 20000127, end: 20050901
  8. ASPIRIN [Concomitant]
     Indication: CARDIAC DISORDER
     Route: 065
     Dates: start: 19980601
  9. ASPIRIN [Concomitant]
     Indication: CEREBROVASCULAR ACCIDENT PROPHYLAXIS
     Route: 065
     Dates: start: 19980601
  10. ASACOL [Concomitant]
     Indication: COLITIS
     Route: 065
  11. BISOPROLOL [Concomitant]
     Indication: CARDIAC DISORDER
     Route: 065
     Dates: start: 20010802, end: 20020806
  12. CELEBREX [Concomitant]
     Indication: PAIN
     Route: 065
     Dates: start: 19990505, end: 20000203
  13. CELEBREX [Concomitant]
     Indication: ARTHRITIS
     Route: 065
     Dates: start: 19990505, end: 20000203
  14. COREG [Concomitant]
     Indication: CARDIAC DISORDER
     Route: 065
     Dates: start: 20030221, end: 20030801
  15. DIGITEK [Concomitant]
     Indication: CARDIAC DISORDER
     Route: 065
  16. DIOVAN [Concomitant]
     Indication: HYPERTENSION
     Route: 065
     Dates: start: 19990707, end: 20030515
  17. ENDOCET [Concomitant]
     Indication: PAIN
     Route: 065
     Dates: start: 20020823, end: 20050108
  18. FUROSEMIDE [Concomitant]
     Indication: FLUID RETENTION
     Route: 065
     Dates: start: 19970108, end: 20050714
  19. HYDROCODONE HYDROCHLORIDE [Concomitant]
     Indication: PAIN
     Route: 065
     Dates: start: 19991117, end: 20030818
  20. ISOSORBIDE [Concomitant]
     Indication: CARDIAC DISORDER
     Route: 065
     Dates: start: 20000818, end: 20030130
  21. K-DUR 10 [Concomitant]
     Indication: CARDIAC DISORDER
     Route: 065
     Dates: start: 19980626, end: 20010803
  22. KLOR-CON [Concomitant]
     Indication: CARDIAC DISORDER
     Route: 065
     Dates: start: 19970501, end: 20030822
  23. KLOR-CON [Concomitant]
     Indication: HYPOKALAEMIA
     Route: 065
     Dates: start: 19970501, end: 20030822
  24. NITRO-DUR [Concomitant]
     Indication: ANGINA PECTORIS
     Route: 065
     Dates: start: 20000711, end: 20010709
  25. NITROQUICK [Concomitant]
     Indication: ANGINA PECTORIS
     Route: 065
     Dates: start: 20000307, end: 20000504
  26. NITROSTAT [Concomitant]
     Indication: ANGINA PECTORIS
     Route: 065
     Dates: start: 20030314, end: 20050310
  27. NITRO [Concomitant]
     Indication: CARDIAC DISORDER
     Route: 048
     Dates: start: 20020624, end: 20020830
  28. NITRO [Concomitant]
     Indication: ANGINA PECTORIS
     Route: 061
     Dates: start: 19990407, end: 20000705
  29. PERCOCET [Concomitant]
     Indication: PAIN
     Route: 065
     Dates: start: 20020114, end: 20020725
  30. PLAVIX [Concomitant]
     Indication: CARDIAC DISORDER
     Route: 065
     Dates: start: 20030221, end: 20030625
  31. PLAVIX [Concomitant]
     Indication: MYOCARDIAL INFARCTION
     Route: 065
     Dates: start: 20030221, end: 20030625
  32. PREDNISONE [Concomitant]
     Indication: PAIN
     Route: 065
     Dates: start: 20000110, end: 20041210
  33. PREMARIN [Concomitant]
     Indication: HORMONE LEVEL ABNORMAL
     Route: 065
     Dates: start: 19970108, end: 20020830
  34. PROCARDIA [Concomitant]
     Indication: CARDIAC DISORDER
     Route: 065
     Dates: start: 19970108, end: 19970504
  35. PROPOXYPHENE HYDROCHLORIDE [Concomitant]
     Indication: PAIN
     Route: 065
     Dates: start: 19970108, end: 20020801
  36. ROXICET [Concomitant]
     Indication: PAIN
     Route: 065
     Dates: start: 20020720, end: 20030801
  37. TIZANIDINE HYDROCHLORIDE [Concomitant]
     Indication: HYPOTONIA
     Route: 065
     Dates: start: 20030711
  38. ULTRAM [Concomitant]
     Indication: PAIN
     Route: 065
     Dates: start: 19991222
  39. ZEBETA [Concomitant]
     Indication: CARDIAC DISORDER
     Route: 065
     Dates: start: 20000110, end: 20010709
  40. DIGITEK [Concomitant]
     Route: 065
     Dates: start: 20030221, end: 20030416
  41. NITROGLYCERIN [Concomitant]
     Indication: ANGINA PECTORIS
     Route: 065
     Dates: start: 19991202, end: 20000404
  42. POTASSIUM CHLORIDE [Concomitant]
     Indication: CARDIAC DISORDER
     Route: 065
     Dates: start: 19970404, end: 20050901
  43. THEOPHYLLINE [Concomitant]
     Indication: ADRENOCORTICAL INSUFFICIENCY CHRONIC
     Route: 065
     Dates: start: 19970217, end: 20001101

REACTIONS (4)
  - CARDIAC FAILURE CONGESTIVE [None]
  - HERNIA [None]
  - MYOCARDIAL INFARCTION [None]
  - THYROID DISORDER [None]
